FAERS Safety Report 5189947-9 (Version None)
Quarter: 2006Q4

REPORT INFORMATION
  Report Type: 
  Country: None (occurrence: None)
  Receive Date: 20061218
  Receipt Date: 20061204
  Transmission Date: 20070319
  Serious: Yes (Life-Threatening)
  Sender: FDA-Public Use
  Company Number: GXKR2006GB07905

PATIENT
  Age: 70 Year
  Sex: Male

DRUGS (6)
  1. WARFARIN SODIUM [Suspect]
     Indication: DRUG USE FOR UNKNOWN INDICATION
  2. MULTIBIONTA(ASCORBIC ACID, CALCIUM PANTOTHENATE, CYANOCOBALAMIN, NICOT [Suspect]
     Indication: DRUG USE FOR UNKNOWN INDICATION
     Dosage: QD, ORAL
     Route: 048
     Dates: start: 20061001, end: 20061018
  3. ASPIRIN [Suspect]
     Indication: DRUG USE FOR UNKNOWN INDICATION
     Dosage: QD, ORAL
     Route: 048
  4. BISOPROLOL FUMARATE [Concomitant]
  5. FLECAINIDE ACETATE [Concomitant]
  6. TAMSULOSIN HCL [Concomitant]

REACTIONS (4)
  - DRUG INTERACTION [None]
  - DYSURIA [None]
  - HAEMATURIA [None]
  - INTERNATIONAL NORMALISED RATIO INCREASED [None]
